FAERS Safety Report 5285662-1 (Version None)
Quarter: 2007Q1

REPORT INFORMATION
  Report Type: 
  Country: None (occurrence: None)
  Receive Date: 20070126
  Receipt Date: 20061129
  Transmission Date: 20070707
  Serious: No
  Sender: FDA-Public Use
  Company Number: 012597

PATIENT
  Age: 71 Year
  Sex: Male

DRUGS (6)
  1. PRIALT [Suspect]
     Indication: PAIN
     Dosage: SEE IMAGE
     Route: 037
     Dates: start: 20061026, end: 20061113
  2. PRIALT [Suspect]
     Indication: PAIN
     Dosage: SEE IMAGE
     Route: 037
     Dates: start: 20060808
  3. PRIALT [Suspect]
     Indication: PAIN
     Dosage: SEE IMAGE
     Route: 037
     Dates: start: 20061006
  4. OXYCONTIN [Concomitant]
  5. EFFEXOR /01233801/ (VENLAFAXINE) [Concomitant]
  6. CYMBALTA [Concomitant]

REACTIONS (5)
  - ASTHENIA [None]
  - DEPRESSION [None]
  - HALLUCINATION, AUDITORY [None]
  - URINARY INCONTINENCE [None]
  - URINARY RETENTION [None]
